FAERS Safety Report 7958277-1 (Version None)
Quarter: 2011Q4

REPORT INFORMATION
  Report Type: 
  Country: None (occurrence: None)
  Receive Date: 20111205
  Receipt Date: 20060106
  Transmission Date: 20120403
  Serious: Yes (Other)
  Sender: FDA-Public Use
  Company Number: PHHY2006MX05634

PATIENT
  Age: 67 Year
  Sex: Female

DRUGS (5)
  1. PLENDIL [Concomitant]
     Dosage: 5 MG, QD
  2. LANTUS [Concomitant]
     Dosage: 18 MG, QD
     Route: 058
  3. VENTIDE [Concomitant]
     Dosage: 2 SHOTS EVERY 8 HOURS
  4. DIOVAN [Suspect]
     Indication: HYPERTENSION
     Dosage: 320 MG, QD
     Route: 048
     Dates: start: 20051223, end: 20051230
  5. SELOPRES ZOK [Concomitant]
     Dosage: METOPROLOL 95MG /HYDROCHLOROTHIAZIDE 12.5MG

REACTIONS (4)
  - COUGH [None]
  - FATIGUE [None]
  - BLOOD PRESSURE INCREASED [None]
  - ASPHYXIA [None]
